FAERS Safety Report 8581416-9 (Version None)
Quarter: 2012Q3

REPORT INFORMATION
  Report Type: 
  Country: None (occurrence: None)
  Receive Date: 20120809
  Receipt Date: 20120731
  Transmission Date: 20120928
  Serious: Yes (Hospitalization)
  Sender: FDA-Public Use
  Company Number: US-BAYER-2012-079093

PATIENT
  Age: 28 Year
  Sex: Female
  Weight: 49.887 kg

DRUGS (9)
  1. IBUPROFEN [Concomitant]
     Dosage: UNK
  2. FLEXERIL [Concomitant]
     Dosage: UNK
  3. YAZ [Suspect]
     Dosage: UNK
  4. PERCOCET [Concomitant]
     Dosage: 5/325 1-2 EVERY 6 HOURS
  5. XANAX [Concomitant]
     Indication: ANXIETY
     Dosage: UNK
  6. TORADOL [Concomitant]
     Dosage: 60 MG, UNK
     Route: 030
  7. LEXAPRO [Concomitant]
     Dosage: 10 MG, DAILY
  8. OXYCONTIN [Concomitant]
     Dosage: UNK
  9. MORPHINE [Concomitant]
     Dosage: UNK

REACTIONS (1)
  - DEEP VEIN THROMBOSIS [None]
